FAERS Safety Report 14313326 (Version 1)
Quarter: 2017Q4

REPORT INFORMATION
  Report Type: Spontaneous
  Country: ES (occurrence: ES)
  Receive Date: 20171221
  Receipt Date: 20171221
  Transmission Date: 20180321
  Serious: Yes (Other)
  Sender: FDA-Public Use
  Company Number: ES-COVIS PHARMA B.V.-2017COV01599

PATIENT
  Age: 59 Year
  Sex: Male

DRUGS (1)
  1. RILUZOLE. [Suspect]
     Active Substance: RILUZOLE
     Indication: AMYOTROPHIC LATERAL SCLEROSIS
     Dosage: UNK
     Route: 065

REACTIONS (5)
  - Lung consolidation [Recovered/Resolved]
  - Pulmonary toxicity [Recovered/Resolved]
  - Emphysema [Recovered/Resolved]
  - Bronchiectasis [Recovered/Resolved]
  - Lung disorder [Recovered/Resolved]
